FAERS Safety Report 15681626 (Version 2)
Quarter: 2020Q4

REPORT INFORMATION
  Report Type: Other
  Country: FR (occurrence: FR)
  Receive Date: 20181203
  Receipt Date: 20201222
  Transmission Date: 20210113
  Serious: Yes (Death, Life-Threatening)
  Sender: FDA-Public Use
  Company Number: FR-INCYTE CORPORATION-2018IN012054

PATIENT

DRUGS (2)
  1. JAKAVI [Suspect]
     Active Substance: RUXOLITINIB
     Dosage: 10 MG, QD (1 CP IN THE EVENING) (5 MG TABLET)
     Route: 048
     Dates: start: 201802, end: 20181015
  2. JAKAVI [Suspect]
     Active Substance: RUXOLITINIB
     Indication: MYELOPROLIFERATIVE NEOPLASM
     Dosage: 15 MG, QD (1 CP LE MATIN)
     Route: 048
     Dates: start: 201802, end: 20181015

REACTIONS (1)
  - Lymph node tuberculosis [Not Recovered/Not Resolved]

NARRATIVE: CASE EVENT DATE: 20181011
